FAERS Safety Report 6048838-1 (Version None)
Quarter: 2009Q1

REPORT INFORMATION
  Report Type: 
  Country: None (occurrence: None)
  Receive Date: 20090123
  Receipt Date: 20090113
  Transmission Date: 20090719
  Serious: Yes (Other)
  Sender: FDA-Public Use
  Company Number: FR-JNJFOC-20081205331

PATIENT
  Sex: Male
  Weight: 75 kg

DRUGS (11)
  1. ARESTAL [Suspect]
     Route: 048
  2. ARESTAL [Suspect]
     Dosage: 1 OR 2 TABLETS A DAY
     Route: 048
  3. ARESTAL [Suspect]
     Indication: DIARRHOEA
     Dosage: 3 TO 4 TABS A DAY
     Route: 048
  4. SPASFON [Suspect]
     Indication: DIARRHOEA
     Route: 048
  5. DICETEL [Suspect]
     Indication: DIARRHOEA
     Route: 048
  6. EFFEXOR [Suspect]
     Indication: DEPRESSION
     Route: 048
  7. ZOXAN [Suspect]
     Indication: DRUG USE FOR UNKNOWN INDICATION
     Route: 048
  8. HAVLANE [Concomitant]
     Indication: DRUG USE FOR UNKNOWN INDICATION
     Route: 048
  9. TIORFAN [Concomitant]
     Indication: DIARRHOEA
  10. BACILOR [Concomitant]
     Indication: DIARRHOEA
     Route: 048
  11. SELOKEN [Concomitant]
     Indication: PALPITATIONS

REACTIONS (3)
  - FLATULENCE [None]
  - GASTROINTESTINAL SOUNDS ABNORMAL [None]
  - TONGUE DISCOLOURATION [None]
